FAERS Safety Report 9064931 (Version 1)
Quarter: 2013Q1

REPORT INFORMATION
  Report Type: Spontaneous
  Country: US (occurrence: US)
  Receive Date: 20130128
  Receipt Date: 20130128
  Transmission Date: 20140127
  Serious: Yes (Hospitalization, Other)
  Sender: FDA-Public Use
  Company Number: PHEH2012US021065

PATIENT
  Age: 71 Year
  Sex: Male
  Weight: 84.35 kg

DRUGS (11)
  1. GLEEVEC [Suspect]
     Dosage: 400 MG, DAILY
     Route: 048
  2. ASPIRIN [Concomitant]
     Dosage: 81 MG, UNK
  3. NEXIUM [Concomitant]
     Dosage: UNK UKN, UNK
  4. PLAVIX [Concomitant]
     Dosage: UNK UKN, UNK
  5. COUMADINE [Concomitant]
     Dosage: UNK UKN, UNK
  6. LIPITOR [Concomitant]
     Dosage: UNK UKN, UNK
  7. NIASPAN [Concomitant]
     Dosage: UNK UKN, UNK
  8. RANEXA [Concomitant]
     Dosage: UNK UKN, UNK
  9. MULTIVITAMIN [Concomitant]
     Dosage: UNK UKN, UNK
  10. METOPROLOL [Concomitant]
     Dosage: UNK UKN, UNK
  11. AVODART [Concomitant]
     Dosage: UNK UKN, UNK

REACTIONS (7)
  - Malaise [Unknown]
  - Arrhythmia [Unknown]
  - Palpitations [Unknown]
  - Polyp [Unknown]
  - Haemorrhage [Unknown]
  - Dyspnoea [Unknown]
  - Fatigue [Unknown]
